FAERS Safety Report 7295079-6 (Version None)
Quarter: 2011Q1

REPORT INFORMATION
  Report Type: 
  Country: None (occurrence: None)
  Receive Date: 20110216
  Receipt Date: 20110208
  Transmission Date: 20110831
  Serious: Yes (Hospitalization)
  Sender: FDA-Public Use
  Company Number: HU-BRISTOL-MYERS SQUIBB COMPANY-15375769

PATIENT
  Age: 22 Year
  Sex: Male

DRUGS (3)
  1. CLONAZEPAM [Concomitant]
     Dates: start: 20100827, end: 20110113
  2. BIPERIDEN HYDROCHLORIDE TAB [Concomitant]
     Dates: start: 20100825, end: 20101207
  3. ARIPIPRAZOLE [Suspect]
     Indication: SCHIZOPHRENIA
     Dosage: 11AUG10-22SEP2010 11AUG-16NOV(98D) 03NOV-09NOV10(7D) 10-30NOV10(21D)
     Route: 030
     Dates: start: 20100811, end: 20101207

REACTIONS (1)
  - SCHIZOPHRENIA, PARANOID TYPE [None]
